FAERS Safety Report 20987048 (Version 1)
Quarter: 2022Q2

REPORT INFORMATION
  Report Type: Spontaneous
  Country: US (occurrence: None)
  Receive Date: 20220619
  Receipt Date: 20220619
  Transmission Date: 20220721
  Serious: No
  Sender: FDA-Public Use
  Company Number: None

PATIENT
  Age: 45 Year
  Sex: Male
  Weight: 92.25 kg

DRUGS (1)
  1. PREDNISONE [Suspect]
     Active Substance: PREDNISONE
     Indication: Dermatitis contact
     Dosage: OTHER QUANTITY : 20 TABLET(S);?FREQUENCY : AS NEEDED;?
     Route: 048
     Dates: start: 20220610, end: 20220613

REACTIONS (4)
  - Rash pruritic [None]
  - Rash erythematous [None]
  - Skin burning sensation [None]
  - Therapy cessation [None]

NARRATIVE: CASE EVENT DATE: 20220615
